FAERS Safety Report 6416127-9 (Version None)
Quarter: 2009Q4

REPORT INFORMATION
  Report Type: 
  Country: None (occurrence: None)
  Receive Date: 20091027
  Receipt Date: 20091016
  Transmission Date: 20100525
  Serious: Yes (Other)
  Sender: FDA-Public Use
  Company Number: AU-AVENTIS-200921830GDDC

PATIENT
  Age: 84 Year
  Sex: Female

DRUGS (5)
  1. ARAVA [Suspect]
     Indication: RHEUMATOID ARTHRITIS
     Route: 048
     Dates: start: 20081120
  2. METHOTREXATE [Concomitant]
     Dosage: DOSE: UNK
  3. FOLIC ACID [Concomitant]
     Dosage: DOSE: UNK
  4. TRAMADOL HYDROCHLORIDE [Concomitant]
     Dosage: DOSE: UNK
  5. PARACETAMOL [Concomitant]
     Dosage: DOSE: UNK

REACTIONS (1)
  - SYNCOPE [None]
